FAERS Safety Report 7428726-6 (Version None)
Quarter: 2011Q2

REPORT INFORMATION
  Report Type: 
  Country: None (occurrence: None)
  Receive Date: 20110421
  Receipt Date: 20110418
  Transmission Date: 20111010
  Serious: Yes (Hospitalization, Other)
  Sender: FDA-Public Use
  Company Number: US-B.I. PHARMACEUTICALS,INC./RIDGEFIELD-2011-BP-11113BP

PATIENT

DRUGS (1)
  1. PRADAXA [Suspect]
     Dosage: 1000 MG
     Dates: end: 20110415

REACTIONS (2)
  - CATHETER SITE HAEMORRHAGE [None]
  - HAEMORRHAGE [None]
